FAERS Safety Report 7428881-8 (Version None)
Quarter: 2011Q2

REPORT INFORMATION
  Report Type: 
  Country: None (occurrence: None)
  Receive Date: 20110421
  Receipt Date: 20110314
  Transmission Date: 20111010
  Serious: Yes (Other)
  Sender: FDA-Public Use
  Company Number: US-AMGEN-KDC407986

PATIENT
  Age: 35 Year
  Sex: Female

DRUGS (6)
  1. PACLITAXEL [Suspect]
     Dosage: 80 MG/M2, QWK
     Route: 042
  2. TRASTUZUMAB [Suspect]
     Dosage: 2 MG/KG, QWK
     Route: 042
  3. PEGFILGRASTIM [Suspect]
     Indication: BREAST CANCER
     Dosage: 6 MG, UNK
     Route: 058
  4. LAPATINIB [Suspect]
     Dosage: 1000 MG, QD
     Route: 048
  5. DOXORUBICIN HCL [Suspect]
     Dosage: 60 MG/M2, Q2WK
     Route: 042
  6. CYCLOPHOSPHAMIDE [Suspect]
     Dosage: 600 MG/M2, Q2WK
     Route: 042

REACTIONS (1)
  - CARDIAC FAILURE CONGESTIVE [None]
